FAERS Safety Report 4884722-4 (Version None)
Quarter: 2006Q1

REPORT INFORMATION
  Report Type: 
  Country: None (occurrence: None)
  Receive Date: 20060119
  Receipt Date: 20060112
  Transmission Date: 20060701
  Serious: Yes (Other)
  Sender: FDA-Public Use
  Company Number: 2006AC00083

PATIENT
  Age: 29404 Day
  Sex: Male

DRUGS (6)
  1. CRESTOR [Suspect]
     Route: 048
     Dates: start: 20051213, end: 20051217
  2. KLACID SR [Interacting]
     Dates: start: 20051213
  3. SERETIDE AEROSOL [Concomitant]
  4. COVERSYL [Concomitant]
  5. COMBIVENT [Concomitant]
  6. CELESTONE TAB [Concomitant]
     Dates: start: 20051213

REACTIONS (2)
  - DRUG INTERACTION [None]
  - MYALGIA [None]
